FAERS Safety Report 6239363-3 (Version None)
Quarter: 2009Q2

REPORT INFORMATION
  Report Type: 
  Country: None (occurrence: None)
  Receive Date: 20090618
  Receipt Date: 20090618
  Transmission Date: 20091009
  Serious: No
  Sender: FDA-Public Use
  Company Number: None

PATIENT
  Age: 53 Year
  Sex: Female
  Weight: 58.9676 kg

DRUGS (1)
  1. ZICAM SWABS [Suspect]
     Indication: NASOPHARYNGITIS
     Dosage: 1 SWAB 1X PER DAY FOR 2D NASAL
     Route: 045
     Dates: start: 20070711, end: 20070712

REACTIONS (1)
  - ANOSMIA [None]
